FAERS Safety Report 9868651 (Version 3)
Quarter: 2014Q4

REPORT INFORMATION
  Report Type: Spontaneous
  Country: US (occurrence: US)
  Receive Date: 20140204
  Receipt Date: 20141026
  Transmission Date: 20150529
  Serious: Yes (Hospitalization, Other)
  Sender: FDA-Public Use
  Company Number: US-009507513-1402USA000061

PATIENT
  Sex: Female

DRUGS (1)
  1. NUVARING [Suspect]
     Active Substance: ETHINYL ESTRADIOL\ETONOGESTREL
     Indication: PRODUCT USED FOR UNKNOWN INDICATION
     Dosage: 0.12 MG-0.015 MG/24 HR; LEAVE IN PLACE FOR 3 WEEKS, REMOVE FOR 1 WEEK
     Route: 067
     Dates: start: 20110302

REACTIONS (10)
  - Seizure [Recovering/Resolving]
  - Hypertension [Not Recovered/Not Resolved]
  - Cerebrovascular accident [Recovering/Resolving]
  - Back pain [Unknown]
  - Fall [Unknown]
  - Thyroid neoplasm [Unknown]
  - Thrombophlebitis superficial [Unknown]
  - Varicose vein [Unknown]
  - Blood cholesterol abnormal [Unknown]
  - Endovenous ablation [Unknown]

NARRATIVE: CASE EVENT DATE: 20111129
